FAERS Safety Report 18307604 (Version 1)
Quarter: 2020Q3

REPORT INFORMATION
  Report Type: Report from Study
  Country: IR (occurrence: IR)
  Receive Date: 20200924
  Receipt Date: 20200924
  Transmission Date: 20201103
  Serious: Yes (Hospitalization)
  Sender: FDA-Public Use
  Company Number: IR-NOVOPROD-754243

PATIENT
  Age: 12 Year
  Sex: Female
  Weight: 48.5 kg

DRUGS (3)
  1. LANTUS [Concomitant]
     Active Substance: INSULIN GLARGINE
     Indication: TYPE 1 DIABETES MELLITUS
     Dosage: 23 IU, BID
  2. METFORMIN [Concomitant]
     Active Substance: METFORMIN HYDROCHLORIDE
     Indication: TYPE 1 DIABETES MELLITUS
     Dosage: UNK
  3. NOVORAPID [Suspect]
     Active Substance: INSULIN ASPART
     Indication: TYPE 1 DIABETES MELLITUS
     Dosage: UNK (NOT FIXED)
     Route: 058

REACTIONS (5)
  - Peripheral swelling [Unknown]
  - Ketoacidosis [Recovered/Resolved]
  - Hypoglycaemia [Unknown]
  - Blood glucose fluctuation [Unknown]
  - Injection site swelling [Unknown]
